FAERS Safety Report 12083011 (Version 1)
Quarter: 2016Q1

REPORT INFORMATION
  Report Type: Spontaneous
  Country: US (occurrence: US)
  Receive Date: 20160217
  Receipt Date: 20160217
  Transmission Date: 20160526
  Serious: Yes (Other)
  Sender: FDA-Public Use
  Company Number: US-PFIZER INC-2016083158

PATIENT
  Age: 54 Year
  Sex: Male
  Weight: 101.4 kg

DRUGS (51)
  1. MAXIPIME [Concomitant]
     Active Substance: CEFEPIME HYDROCHLORIDE
     Dosage: 2000 MG, UNK (2, 000 MG BY IV ROUTE ONE TIME)
     Route: 042
  2. NOVOLOG [Concomitant]
     Active Substance: INSULIN ASPART
     Dosage: UNK, 3X/DAY (INJECT 1-6 UNITS SUBCUTANEOUSLY TID W/MEALS-CORRECTION DOSE)
     Route: 058
  3. OMNIPAQUE [Concomitant]
     Active Substance: IOHEXOL
     Dosage: 100 ML, UNK
     Route: 042
  4. SENOKOT [Concomitant]
     Active Substance: SENNOSIDES
     Dosage: 34.4 MG, DAILY
     Route: 048
  5. LISINOPRIL. [Concomitant]
     Active Substance: LISINOPRIL
     Dosage: 10 MG, DAILY
     Route: 048
     Dates: start: 20150707, end: 20160201
  6. DUONEB [Concomitant]
     Active Substance: ALBUTEROL SULFATE\IPRATROPIUM BROMIDE
     Dosage: 3 ML, 4X/DAY (IPRATROPIUM 0.5MG-ALBUTEROL 3MG)
  7. PROTONIX [Concomitant]
     Active Substance: PANTOPRAZOLE SODIUM
     Dosage: 20 MG, 2X/DAY
     Route: 048
  8. PROTONIX [Concomitant]
     Active Substance: PANTOPRAZOLE SODIUM
     Dosage: 20 MG, 1X/DAY
     Route: 048
  9. VANCOCIN [Concomitant]
     Active Substance: VANCOMYCIN HYDROCHLORIDE
     Dosage: 250 ML, 2X/DAY
     Route: 042
  10. AMICAR [Concomitant]
     Active Substance: AMINOCAPROIC ACID
     Dosage: 1000 MG, 4X/DAY
     Route: 048
  11. SYNTHROID [Concomitant]
     Active Substance: LEVOTHYROXINE SODIUM
     Dosage: 75 UG, 1X/DAY
     Route: 048
     Dates: start: 20160108
  12. TYLENOL [Concomitant]
     Active Substance: ACETAMINOPHEN
     Dosage: 1300 MG, AS NEEDED (TABLET 650 MG: TAKE 2 TABLETS BY MOUTH EVERY 4 HOURS)
     Route: 048
  13. DEXTROSE. [Concomitant]
     Active Substance: DEXTROSE
     Dosage: 50 ML, UNK (50 ML BY IV ROUTE IF NEEDED FOR HYPOGLYCEMIA (BLOOD GLUCOSE LESS THAN 60 MG/DL))
     Route: 042
  14. COLACE [Concomitant]
     Active Substance: DOCUSATE SODIUM
     Dosage: 100 MG, 2X/DAY
     Route: 048
  15. NACL [Concomitant]
     Active Substance: SODIUM CHLORIDE
     Dosage: 2000 ML, 1X/DAY
  16. VANCOCIN [Concomitant]
     Active Substance: VANCOMYCIN HYDROCHLORIDE
     Dosage: 250 ML, 1X/DAY
  17. COMPAZINE [Concomitant]
     Active Substance: PROCHLORPERAZINE MALEATE
     Indication: VOMITING
  18. PRILOSEC [Concomitant]
     Active Substance: OMEPRAZOLE MAGNESIUM
     Dosage: 20 MG, 2X/DAY
     Route: 048
  19. SYNTHROID [Concomitant]
     Active Substance: LEVOTHYROXINE SODIUM
     Dosage: 75 UG, DAILY (TAKE ON AN EMPTY STOMACH)
     Route: 048
     Dates: start: 20160202
  20. ROBITUSSIN A C [Concomitant]
     Dosage: UNK UNK, 4X/DAY (GUAIFENESIN 100 MG-CODEINE 10 MG/5ML)
     Route: 048
  21. NEURONTIN [Concomitant]
     Active Substance: GABAPENTIN
     Dosage: 300 MG, 2X/DAY
     Dates: start: 20151018
  22. LYRICA [Concomitant]
     Active Substance: PREGABALIN
     Dosage: 50 MG, 2X/DAY
     Route: 048
     Dates: start: 20151215, end: 20160114
  23. MAXIPIME [Concomitant]
     Active Substance: CEFEPIME HYDROCHLORIDE
     Dosage: 2000 MG, UNK (2,000 MG BY IV ROUTE O8H NOW)
     Route: 042
  24. DEXTROSE. [Concomitant]
     Active Substance: DEXTROSE
     Indication: HYPOGLYCAEMIA
     Dosage: 25 ML, UNK (25 ML BY IV ROUTE IF NEEDED FOR HYPOGLYCEMIA (BLOOD GLUCOSE 60-70 MG/DL))
     Route: 042
  25. OMNISCAN [Concomitant]
     Active Substance: GADODIAMIDE
     Dosage: 10 ML, UNK
     Route: 042
  26. ZOFRAN [Concomitant]
     Active Substance: ONDANSETRON HYDROCHLORIDE
     Indication: VOMITING
  27. ALTEPLASE [Concomitant]
     Active Substance: ALTEPLASE
     Dosage: 2 MG, AS NEEDED
  28. ADRENALINE [Concomitant]
     Active Substance: EPINEPHRINE
     Indication: ANAPHYLACTIC REACTION
     Dosage: UNK (INJECT 0.3-0.5 ML INTO THE MUSCLE)
     Route: 030
  29. ATIVAN [Concomitant]
     Active Substance: LORAZEPAM
     Indication: VOMITING
  30. AMICAR [Concomitant]
     Active Substance: AMINOCAPROIC ACID
     Dosage: 5000 MG, 1X/DAY
     Route: 042
  31. HYDROCODONE BITARTRATE/PARACETAMOL [Concomitant]
     Indication: PAIN
     Dosage: UNK, 4X/DAY (HYDROCODONE 5 MG/ACETAMINOPHEN 325 MG: TAKE 1-2 TABLETS)
     Route: 048
  32. NORCO [Concomitant]
     Active Substance: ACETAMINOPHEN\HYDROCODONE BITARTRATE
     Dosage: UNK
  33. ATIVAN [Concomitant]
     Active Substance: LORAZEPAM
     Indication: NAUSEA
     Dosage: UNK (TABLET 0.5-1 MG (DISCONTINUED): DISSOLVE 0.5-1 TABLETS UNDER THE TONGUE EVERY 4 HOURS)
     Route: 060
  34. COMPAZINE [Concomitant]
     Active Substance: PROCHLORPERAZINE MALEATE
     Indication: NAUSEA
     Dosage: 10 MG, 4X/DAY
     Route: 048
  35. AMICAR [Concomitant]
     Active Substance: AMINOCAPROIC ACID
     Dosage: 1000 MG, 4X/DAY
     Route: 042
  36. ALBUTEROL. [Concomitant]
     Active Substance: ALBUTEROL
     Indication: DYSPNOEA
  37. KEPPRA [Concomitant]
     Active Substance: LEVETIRACETAM
     Dosage: 500 MG, 2X/DAY
     Route: 048
     Dates: start: 20150225
  38. FLAGYL [Concomitant]
     Active Substance: METRONIDAZOLE\METRONIDAZOLE HYDROCHLORIDE
     Dosage: 500 MG, 1X/DAY
     Route: 042
  39. FLAGYL [Concomitant]
     Active Substance: METRONIDAZOLE\METRONIDAZOLE HYDROCHLORIDE
     Dosage: 500 MG, 3X/DAY
  40. ZOFRAN [Concomitant]
     Active Substance: ONDANSETRON HYDROCHLORIDE
     Indication: NAUSEA
     Dosage: 2 ML, 2X/DAY
     Route: 042
  41. PEPCID [Concomitant]
     Active Substance: FAMOTIDINE
     Indication: HYPERSENSITIVITY
     Dosage: 50 ML, UNK
     Route: 042
  42. SOLU-MEDROL [Concomitant]
     Active Substance: METHYLPREDNISOLONE SODIUM SUCCINATE
     Indication: HYPERSENSITIVITY
     Dosage: 2 ML, UNK
     Route: 042
  43. MAGNESIUM OXIDE. [Concomitant]
     Active Substance: MAGNESIUM OXIDE
     Dosage: 400 MG, 2X/DAY
     Route: 048
     Dates: start: 20150826, end: 20160119
  44. XALKORI [Suspect]
     Active Substance: CRIZOTINIB
     Indication: NON-SMALL CELL LUNG CANCER
     Dosage: 250 MG, 2X/DAY
     Route: 048
     Dates: start: 20160113, end: 20160113
  45. METFORMIN [Concomitant]
     Active Substance: METFORMIN HYDROCHLORIDE
     Dosage: 500 MG, 2X/DAY (WITH MEAL)
     Route: 048
  46. ALBUTEROL. [Concomitant]
     Active Substance: ALBUTEROL
     Indication: WHEEZING
     Dosage: 90 UG, AS NEEDED (TAKE 2 PUFFS BY INHALATION EVERY 4 HOURS IF NEEDED )
     Dates: start: 20150318, end: 20160119
  47. TYLENOL [Concomitant]
     Active Substance: ACETAMINOPHEN
     Indication: PAIN
     Dosage: 1300 MG, 1X/DAY (TABLET 650 MG: TAKE 2 TABLETS )
     Route: 048
  48. GLUCAGON. [Concomitant]
     Active Substance: GLUCAGON
     Indication: BLOOD GLUCOSE DECREASED
     Dosage: 1 MG, UNK
     Route: 030
  49. BENADRYL [Concomitant]
     Active Substance: DIPHENHYDRAMINE HYDROCHLORIDE
     Indication: PRURITUS
     Dosage: 1 ML, UNK
     Route: 042
  50. BENADRYL [Concomitant]
     Active Substance: DIPHENHYDRAMINE HYDROCHLORIDE
     Indication: HYPERSENSITIVITY
  51. HEPARIN [Concomitant]
     Active Substance: HEPARIN SODIUM
     Dosage: 3 ML, UNK

REACTIONS (5)
  - Hyponatraemia [Not Recovered/Not Resolved]
  - Chest pain [Not Recovered/Not Resolved]
  - Fatigue [Unknown]
  - Sepsis [Not Recovered/Not Resolved]
  - Pneumonia [Not Recovered/Not Resolved]

NARRATIVE: CASE EVENT DATE: 20160201
